FAERS Safety Report 7779343-X (Version None)
Quarter: 2011Q3

REPORT INFORMATION
  Report Type: 
  Country: None (occurrence: None)
  Receive Date: 20110926
  Receipt Date: 20090224
  Transmission Date: 20111222
  Serious: Yes (Other)
  Sender: FDA-Public Use
  Company Number: PHHY2009TW60945

PATIENT
  Sex: Female

DRUGS (1)
  1. GLEEVEC [Suspect]
     Indication: CHRONIC MYELOID LEUKAEMIA
     Dosage: 400 MG, UNK

REACTIONS (5)
  - ASTHENIA [None]
  - NEURODEGENERATIVE DISORDER [None]
  - FATIGUE [None]
  - THIRST [None]
  - DYSARTHRIA [None]
